FAERS Safety Report 5122439-1 (Version None)
Quarter: 2006Q4

REPORT INFORMATION
  Report Type: 
  Country: None (occurrence: None)
  Receive Date: 20061004
  Receipt Date: 20060927
  Transmission Date: 20070319
  Serious: Yes (Other)
  Sender: FDA-Public Use
  Company Number: 2006US-03379

PATIENT
  Age: 17 Year
  Sex: Female

DRUGS (2)
  1. ISOTRETINOIN [Suspect]
     Dosage: 40 MG, QD; 10 MG, QD
     Dates: start: 20051101, end: 20060329
  2. ISOTRETINOIN [Suspect]
     Dosage: 40 MG, QD; 10 MG, QD
     Dates: start: 20051101, end: 20060329

REACTIONS (4)
  - ALOPECIA [None]
  - CRYING [None]
  - DEPRESSION [None]
  - PERSONALITY CHANGE [None]
